FAERS Safety Report 25331990 (Version 1)
Quarter: 2025Q2

REPORT INFORMATION
  Report Type: Other
  Country: KH (occurrence: KH)
  Receive Date: 20250519
  Receipt Date: 20250519
  Transmission Date: 20250716
  Serious: Yes (Hospitalization, Other)
  Sender: OMNIVIUM PHARMACEUTICALS LLC
  Company Number: KH-Omnivium Pharmaceuticals LLC-2176919

PATIENT
  Age: 38 Year
  Sex: Male

DRUGS (2)
  1. NUMBRINO [Suspect]
     Active Substance: COCAINE HYDROCHLORIDE
     Indication: Product used for unknown indication
  2. METHAMPHETAMINE HYDROCHLORIDE [Suspect]
     Active Substance: METHAMPHETAMINE HYDROCHLORIDE

REACTIONS (6)
  - Cardiogenic shock [Unknown]
  - Drug abuse [Unknown]
  - Cardiac failure [Unknown]
  - Coronary artery occlusion [Unknown]
  - Acute myocardial infarction [Unknown]
  - Multiple organ dysfunction syndrome [Unknown]
